FAERS Safety Report 4831493-3 (Version None)
Quarter: 2005Q4

REPORT INFORMATION
  Report Type: 
  Country: None (occurrence: None)
  Receive Date: 20051118
  Receipt Date: 20051107
  Transmission Date: 20060501
  Serious: Yes (Hospitalization)
  Sender: FDA-Public Use
  Company Number: JP-JNJFOC-20050706277

PATIENT
  Sex: Female
  Weight: 53 kg

DRUGS (18)
  1. REMICADE [Suspect]
     Route: 042
  2. REMICADE [Suspect]
     Route: 042
  3. REMICADE [Suspect]
     Route: 042
  4. REMICADE [Suspect]
     Indication: RHEUMATOID ARTHRITIS
     Route: 042
  5. RHEUMATREX [Concomitant]
     Route: 048
  6. RHEUMATREX [Concomitant]
     Route: 048
  7. RHEUMATREX [Concomitant]
     Indication: RHEUMATOID ARTHRITIS
     Route: 048
  8. AZULFIDINE EN-TABS [Concomitant]
     Indication: RHEUMATOID ARTHRITIS
     Route: 048
  9. LOXONIN [Concomitant]
     Indication: RHEUMATOID ARTHRITIS
     Route: 048
  10. LEUCOVORIN [Concomitant]
     Route: 048
  11. TAKEPRON [Concomitant]
     Route: 048
  12. DIFLUCAN [Concomitant]
     Route: 048
  13. ISCOTIN [Concomitant]
     Indication: ANTIBIOTIC PROPHYLAXIS
     Route: 048
  14. PREDNISOLONE [Concomitant]
     Route: 048
  15. PREDNISOLONE [Concomitant]
     Indication: RHEUMATOID ARTHRITIS
     Route: 048
  16. SOLU-MEDROL [Concomitant]
     Indication: RHEUMATOID ARTHRITIS
     Route: 042
  17. LIMETHASON [Concomitant]
     Indication: RHEUMATOID ARTHRITIS
     Route: 042
  18. FOLIAMIN [Concomitant]
     Route: 048

REACTIONS (2)
  - LARGE INTESTINE CARCINOMA [None]
  - LIPOSARCOMA [None]
